FAERS Safety Report 4355386-3 (Version None)
Quarter: 2004Q2

REPORT INFORMATION
  Report Type: 
  Country: None (occurrence: None)
  Receive Date: 20040505
  Receipt Date: 20040421
  Transmission Date: 20050107
  Serious: Yes (Other)
  Sender: FDA-Public Use
  Company Number: 200403651

PATIENT
  Age: 9 Year
  Sex: Female

DRUGS (1)
  1. CHILDREN'S IBUPROFEN [Suspect]
     Dosage: 21 MG/KG PER DAY

REACTIONS (9)
  - ANURIA [None]
  - AZOTAEMIA [None]
  - COMA [None]
  - HAEMODIALYSIS [None]
  - HYPERKALAEMIA [None]
  - HYPERPHOSPHATAEMIA [None]
  - NERVOUS SYSTEM DISORDER [None]
  - RENAL FAILURE ACUTE [None]
  - WEIGHT DECREASED [None]
